FAERS Safety Report 7436383-8 (Version None)
Quarter: 2011Q2

REPORT INFORMATION
  Report Type: 
  Country: None (occurrence: None)
  Receive Date: 20110426
  Receipt Date: 20110414
  Transmission Date: 20111010
  Serious: Yes (Hospitalization)
  Sender: FDA-Public Use
  Company Number: US-BIOGENIDEC-2011BI010660

PATIENT
  Age: 52 Year
  Sex: Male

DRUGS (2)
  1. AMPYRA [Concomitant]
     Indication: PRODUCT USED FOR UNKNOWN INDICATION
  2. TYSABRI [Suspect]
     Indication: MULTIPLE SCLEROSIS
     Route: 042
     Dates: start: 20090902

REACTIONS (4)
  - DIARRHOEA [None]
  - CLOSTRIDIAL INFECTION [None]
  - STAPHYLOCOCCAL INFECTION [None]
  - MULTIPLE SCLEROSIS [None]
